FAERS Safety Report 9866786 (Version 2)
Quarter: 2014Q1

REPORT INFORMATION
  Report Type: Spontaneous
  Country: GB (occurrence: GB)
  Receive Date: 20140204
  Receipt Date: 20140224
  Transmission Date: 20141002
  Serious: Yes (Death, Hospitalization)
  Sender: FDA-Public Use
  Company Number: GB-ACCORD-021564

PATIENT
  Age: 62 Year
  Sex: Female

DRUGS (12)
  1. DOCETAXEL [Suspect]
     Indication: BREAST CANCER
     Route: 042
     Dates: end: 20131231
  2. PERTUZUMAB [Suspect]
     Indication: BREAST CANCER
     Route: 042
     Dates: end: 20131231
  3. TRASTUZUMAB [Suspect]
     Indication: BREAST CANCER
     Dates: end: 20131231
  4. AMLODIPINE [Concomitant]
     Indication: BLOOD PRESSURE
     Dates: start: 2010
  5. CALCIUM/COLECALCIFEROL [Concomitant]
     Indication: BONE DISORDER
     Dates: start: 20130814
  6. AMOXICILLIN SODIUM/CLAVULANATE POTASSIUM [Concomitant]
     Dates: start: 20131008, end: 20131014
  7. GAVISCON [Concomitant]
  8. ZOTON [Concomitant]
     Dates: start: 20131015
  9. PREDNISOLONE [Concomitant]
     Dates: start: 20131017, end: 20131031
  10. PARACETAMOL [Concomitant]
     Dates: start: 20130814, end: 20130916
  11. OXYGEN [Concomitant]
     Dates: start: 20130814
  12. CHLORPHENAMINE [Concomitant]
     Dates: start: 20131001, end: 20131001

REACTIONS (1)
  - Death [Fatal]
